FAERS Safety Report 11138441 (Version 1)
Quarter: 2015Q2

REPORT INFORMATION
  Report Type: Spontaneous
  Country: FR (occurrence: FR)
  Receive Date: 20150527
  Receipt Date: 20150527
  Transmission Date: 20150821
  Serious: Yes (Hospitalization)
  Sender: FDA-Public Use
  Company Number: FR-AMGEN-FRASP2015048833

PATIENT
  Age: 18 Month
  Sex: Male
  Weight: 9.7 kg

DRUGS (1)
  1. NPLATE [Suspect]
     Active Substance: ROMIPLOSTIM
     Indication: WISKOTT-ALDRICH SYNDROME
     Dosage: 10 MUG, QWK
     Route: 065

REACTIONS (2)
  - Off label use [Unknown]
  - Overdose [Unknown]

NARRATIVE: CASE EVENT DATE: 20150518
